FAERS Safety Report 23431772 (Version 1)
Quarter: 2024Q1

REPORT INFORMATION
  Report Type: Spontaneous
  Country: US (occurrence: US)
  Receive Date: 20240123
  Receipt Date: 20240123
  Transmission Date: 20240410
  Serious: Yes (Other)
  Sender: FDA-Public Use
  Company Number: US-SUN PHARMACEUTICAL INDUSTRIES LTD-2024R1-427844

PATIENT
  Age: 51 Year
  Sex: Female

DRUGS (2)
  1. ALPRAZOLAM [Suspect]
     Active Substance: ALPRAZOLAM
     Indication: Product used for unknown indication
     Dosage: UNK
     Route: 065
  2. FENTANYL [Suspect]
     Active Substance: FENTANYL\FENTANYL CITRATE
     Indication: Drug use disorder
     Dosage: UNK
     Route: 065

REACTIONS (5)
  - Drug use disorder [Unknown]
  - Anxiety [Unknown]
  - Pain [Unknown]
  - Rhinorrhoea [Unknown]
  - Lacrimation increased [Unknown]
